FAERS Safety Report 16915211 (Version 1)
Quarter: 2019Q4

REPORT INFORMATION
  Report Type: Spontaneous
  Country: US (occurrence: US)
  Receive Date: 20191012
  Receipt Date: 20191012
  Transmission Date: 20200122
  Serious: No
  Sender: FDA-Public Use
  Company Number: None

PATIENT
  Age: 48 Year
  Sex: Female
  Weight: 53.55 kg

DRUGS (6)
  1. PARACETAMOL (MINI TMS) [Concomitant]
  2. AIMOVIG [Suspect]
     Active Substance: ERENUMAB-AOOE
     Indication: MIGRAINE
     Dosage: ?          QUANTITY:1 INJECTION(S);OTHER FREQUENCY:MONTHLY;OTHER ROUTE:INJECTION?
     Dates: start: 20190109, end: 20190509
  3. SUPER 8 [Concomitant]
  4. Q10 [Concomitant]
  5. MAGNESIUM [Concomitant]
     Active Substance: MAGNESIUM
  6. ZOMIG [Concomitant]
     Active Substance: ZOLMITRIPTAN

REACTIONS (4)
  - Burning sensation [None]
  - Myalgia [None]
  - Tenderness [None]
  - Pain in extremity [None]

NARRATIVE: CASE EVENT DATE: 20190409
